FAERS Safety Report 5344037-7 (Version None)
Quarter: 2007Q2

REPORT INFORMATION
  Report Type: 
  Country: None (occurrence: None)
  Receive Date: 20070604
  Receipt Date: 20070530
  Transmission Date: 20071010
  Serious: Yes (Other)
  Sender: FDA-Public Use
  Company Number: A0640976A

PATIENT
  Age: 51 Year
  Sex: Female
  Weight: 77 kg

DRUGS (3)
  1. LAMICTAL [Suspect]
     Route: 048
     Dates: start: 20061101
  2. DILANTIN [Concomitant]
  3. MYCELIN 3 [Concomitant]

REACTIONS (7)
  - ACTIVITIES OF DAILY LIVING IMPAIRED [None]
  - DISABILITY [None]
  - DIZZINESS [None]
  - FATIGUE [None]
  - GRAND MAL CONVULSION [None]
  - INSOMNIA [None]
  - PRURITUS [None]
